FAERS Safety Report 6365277-4 (Version None)
Quarter: 2009Q3

REPORT INFORMATION
  Report Type: 
  Country: None (occurrence: None)
  Receive Date: 20090919
  Receipt Date: 20090807
  Transmission Date: 20100115
  Serious: No
  Sender: FDA-Public Use
  Company Number: US-ABBOTT-09P-163-0590360-00

PATIENT
  Sex: Female
  Weight: 58.112 kg

DRUGS (4)
  1. HUMIRA [Suspect]
     Indication: ANKYLOSING SPONDYLITIS
     Route: 058
     Dates: start: 20090806
  2. HUMIRA [Suspect]
     Indication: PSORIATIC ARTHROPATHY
  3. ULTRAM [Concomitant]
     Indication: PAIN
     Route: 048
  4. KROGERS BRAND ^SIMPLY SLEEP^ [Concomitant]
     Indication: INSOMNIA
     Route: 048

REACTIONS (5)
  - CHEST PAIN [None]
  - HEADACHE [None]
  - INJECTION SITE EXTRAVASATION [None]
  - INJECTION SITE PAIN [None]
  - RENAL PAIN [None]
